FAERS Safety Report 6395869-8 (Version None)
Quarter: 2009Q4

REPORT INFORMATION
  Report Type: 
  Country: None (occurrence: None)
  Receive Date: 20091009
  Receipt Date: 20090811
  Transmission Date: 20100525
  Serious: No
  Sender: FDA-Public Use
  Company Number: A0799684A

PATIENT
  Age: 79 Year
  Sex: Female

DRUGS (2)
  1. TYKERB [Suspect]
     Indication: BREAST CANCER
     Dosage: 1TAB PER DAY
     Route: 048
     Dates: start: 20090601
  2. UNKNOWN [Concomitant]

REACTIONS (1)
  - DIARRHOEA [None]
